FAERS Safety Report 6080404-4 (Version None)
Quarter: 2009Q1

REPORT INFORMATION
  Report Type: 
  Country: None (occurrence: None)
  Receive Date: 20090217
  Receipt Date: 20090206
  Transmission Date: 20090719
  Serious: Yes (Life-Threatening, Other)
  Sender: FDA-Public Use
  Company Number: TH-PFIZER INC-2009161711

PATIENT

DRUGS (4)
  1. SUTENT [Suspect]
     Indication: GASTROINTESTINAL STROMAL TUMOUR
     Dosage: 50 MG, 1X/DAY
     Route: 048
     Dates: start: 20081229, end: 20090113
  2. ATENOLOL [Concomitant]
     Dosage: 50 MG, 1X/DAY
     Route: 048
  3. GLIPIZIDE [Concomitant]
     Dosage: 5 MG, 1X/DAY
     Route: 048
  4. VITAMIN B 1-6-12 [Concomitant]
     Dosage: 1 TAB TID
     Route: 048

REACTIONS (1)
  - AUTOIMMUNE THROMBOCYTOPENIA [None]
